FAERS Safety Report 9264216 (Version 1)
Quarter: 2013Q2

REPORT INFORMATION
  Report Type: Spontaneous
  Country: MA (occurrence: MA)
  Receive Date: 20130430
  Receipt Date: 20130430
  Transmission Date: 20140414
  Serious: Yes (Hospitalization)
  Sender: FDA-Public Use
  Company Number: MA-JNJFOC-20130412808

PATIENT
  Sex: 0

DRUGS (5)
  1. DOXORUBICIN [Suspect]
     Indication: PARANEOPLASTIC SYNDROME
     Dosage: AVERAGE DOSE 55 MG/M2 (30-60 MG/M2) AND CUMULATIVE AVERAGE DOSE 356 MG/M2 (150-500 MG/M2)
     Route: 042
  2. EPIRUBICIN [Suspect]
     Indication: PARANEOPLASTIC SYNDROME
     Dosage: AVERAGE DOSE 94 MG/M2 (50-100 MG/M2) AND CUMULATIVE AVERAGE DOSE 552 MG/M2 (220-720 MG/M2)
     Route: 065
  3. TRASTUZUMAB [Concomitant]
     Route: 065
  4. CYCLOPHOSPHAMIDE [Concomitant]
     Route: 065
  5. RADIOTHERAPY [Concomitant]
     Route: 065

REACTIONS (4)
  - Cardiotoxicity [Unknown]
  - Myocardial infarction [Unknown]
  - Systolic dysfunction [Unknown]
  - Cardiomyopathy [Unknown]
